FAERS Safety Report 16471284 (Version 8)
Quarter: 2020Q2

REPORT INFORMATION
  Report Type: Spontaneous
  Country: US (occurrence: US)
  Receive Date: 20190624
  Receipt Date: 20200601
  Transmission Date: 20200713
  Serious: No
  Sender: FDA-Public Use
  Company Number: US-SA-2019SA171220

PATIENT

DRUGS (1)
  1. KEVZARA [Suspect]
     Active Substance: SARILUMAB
     Dosage: 200 MG, QOW
     Route: 058
     Dates: start: 201905

REACTIONS (14)
  - Contusion [Recovered/Resolved]
  - Arthralgia [Unknown]
  - Injection site pain [Unknown]
  - Injection site erythema [Recovered/Resolved]
  - Abdominal pain upper [Recovered/Resolved]
  - Drug ineffective [Unknown]
  - Injection site swelling [Unknown]
  - Rash macular [Unknown]
  - Alopecia [Unknown]
  - Pain [Unknown]
  - Condition aggravated [Unknown]
  - Injection site reaction [Unknown]
  - Muscle spasms [Unknown]
  - Injection site discolouration [Unknown]

NARRATIVE: CASE EVENT DATE: 2019
